FAERS Safety Report 8613999-4 (Version None)
Quarter: 2012Q3

REPORT INFORMATION
  Report Type: 
  Country: None (occurrence: None)
  Receive Date: 20120823
  Receipt Date: 20120817
  Transmission Date: 20120928
  Serious: No
  Sender: FDA-Public Use
  Company Number: US-PFIZER INC-2012177571

PATIENT
  Age: 73 Year
  Sex: Male

DRUGS (12)
  1. ALLOPURINOL [Concomitant]
  2. LASIX [Concomitant]
  3. COMBIVENT [Concomitant]
  4. ATIVAN [Concomitant]
  5. INLYTA [Suspect]
     Indication: RENAL CELL CARCINOMA
     Dosage: 5 MG, 2X/DAY
     Route: 048
     Dates: start: 20120427, end: 20120701
  6. OXYCODONE [Concomitant]
  7. VITAMIN D [Concomitant]
  8. FLUTICASONE PROPIONATE/SALMETEROL [Concomitant]
  9. CRESTOR [Concomitant]
  10. HYDRALAZINE [Concomitant]
  11. POTASSIUM CHLORIDE [Concomitant]
  12. LABETALOL [Concomitant]

REACTIONS (2)
  - RENAL CELL CARCINOMA [None]
  - DISEASE PROGRESSION [None]
